FAERS Safety Report 8047157-1 (Version None)
Quarter: 2012Q1

REPORT INFORMATION
  Report Type: 
  Country: None (occurrence: None)
  Receive Date: 20120116
  Receipt Date: 20120110
  Transmission Date: 20120608
  Serious: Yes (Hospitalization, Other)
  Sender: FDA-Public Use
  Company Number: US-AMGEN-USASP2012001787

PATIENT
  Age: 41 Year
  Sex: Female

DRUGS (1)
  1. ENBREL [Suspect]
     Indication: ANKYLOSING SPONDYLITIS
     Dosage: 50 MG, QWK
     Dates: start: 20110801, end: 20111125

REACTIONS (8)
  - DYSARTHRIA [None]
  - CEREBROVASCULAR ACCIDENT [None]
  - ASTHENIA [None]
  - DIZZINESS [None]
  - HEADACHE [None]
  - VERTIGO [None]
  - COMA [None]
  - MOBILITY DECREASED [None]
